FAERS Safety Report 6342824-X (Version None)
Quarter: 2009Q3

REPORT INFORMATION
  Report Type: 
  Country: None (occurrence: None)
  Receive Date: 20090908
  Receipt Date: 20090827
  Transmission Date: 20100115
  Serious: Yes (Hospitalization, Other)
  Sender: FDA-Public Use
  Company Number: JP-JNJFOC-20080403479

PATIENT
  Age: 21 Year
  Sex: Male

DRUGS (11)
  1. RISPERDAL [Suspect]
     Route: 048
  2. RISPERDAL [Suspect]
     Route: 048
  3. RISPERDAL [Suspect]
     Indication: SCHIZOPHRENIA
     Route: 048
  4. ABILIFY [Suspect]
     Route: 048
  5. ABILIFY [Suspect]
     Indication: HALLUCINATION
     Route: 048
  6. WYPAX [Concomitant]
     Route: 048
  7. WYPAX [Concomitant]
     Indication: ANXIETY
     Route: 048
  8. SILECE [Concomitant]
     Route: 048
  9. SILECE [Concomitant]
     Indication: INSOMNIA
     Route: 048
  10. AMOBAN [Concomitant]
     Route: 048
  11. AMOBAN [Concomitant]
     Indication: INSOMNIA
     Route: 048

REACTIONS (8)
  - AKATHISIA [None]
  - BRADYCARDIA [None]
  - HEPATIC FUNCTION ABNORMAL [None]
  - HEPATIC STEATOSIS [None]
  - HYPERPHAGIA [None]
  - HYPERPROLACTINAEMIA [None]
  - VENTRICULAR EXTRASYSTOLES [None]
  - WEIGHT INCREASED [None]
